FAERS Safety Report 17095041 (Version 1)
Quarter: 2019Q4

REPORT INFORMATION
  Report Type: Spontaneous
  Country: US (occurrence: US)
  Receive Date: 20191101
  Receipt Date: 20191101
  Transmission Date: 20200122
  Serious: No
  Sender: FDA-Public Use
  Company Number: None

PATIENT
  Age: 74 Year
  Sex: Female
  Weight: 58.97 kg

DRUGS (9)
  1. LOPRESSOR [Concomitant]
     Active Substance: METOPROLOL TARTRATE
  2. CLINDAMYCIN HCL 300MG 3X DAY FOR 10 DAYS [Suspect]
     Active Substance: CLINDAMYCIN HYDROCHLORIDE
     Indication: BURN INFECTION
     Dosage: ?          QUANTITY:30 DF DOSAGE FORM;?
     Route: 048
     Dates: start: 20191003, end: 20191012
  3. VIT D [Concomitant]
     Active Substance: VITAMIN D NOS
  4. AMLODIPINE [Concomitant]
     Active Substance: AMLODIPINE BESYLATE
  5. CRESTOR [Concomitant]
     Active Substance: ROSUVASTATIN CALCIUM
  6. HCT [Concomitant]
     Active Substance: HYDROCHLOROTHIAZIDE
  7. PLAVIX [Concomitant]
     Active Substance: CLOPIDOGREL BISULFATE
  8. COLACE [Concomitant]
     Active Substance: DOCUSATE SODIUM
  9. TYLENOL [Concomitant]
     Active Substance: ACETAMINOPHEN

REACTIONS (2)
  - Adverse drug reaction [None]
  - Rash erythematous [None]

NARRATIVE: CASE EVENT DATE: 20191012
